FAERS Safety Report 8383513-X (Version None)
Quarter: 2012Q2

REPORT INFORMATION
  Report Type: 
  Country: None (occurrence: None)
  Receive Date: 20120524
  Receipt Date: 20120515
  Transmission Date: 20120825
  Serious: No
  Sender: FDA-Public Use
  Company Number: US-ASTRAZENECA-2009UW10206

PATIENT
  Age: 86 Year
  Sex: Female

DRUGS (5)
  1. NEXIUM [Suspect]
     Indication: GASTROOESOPHAGEAL REFLUX DISEASE
     Route: 048
     Dates: start: 20050101
  2. SELEGILINE HCL [Suspect]
     Route: 048
  3. NEXIUM [Suspect]
     Route: 048
  4. CLINORIL [Suspect]
     Route: 048
  5. MANY PILLS [Concomitant]

REACTIONS (4)
  - ADVERSE EVENT [None]
  - MALAISE [None]
  - MUSCLE SPASMS [None]
  - DIARRHOEA [None]
